FAERS Safety Report 20185300 (Version 1)
Quarter: 2021Q4

REPORT INFORMATION
  Report Type: Report from Study
  Country: US (occurrence: US)
  Receive Date: 20211215
  Receipt Date: 20211215
  Transmission Date: 20220303
  Serious: Yes (Other)
  Sender: FDA-Public Use
  Company Number: US-ABBVIE-21K-163-4198055-00

PATIENT
  Sex: Female

DRUGS (1)
  1. HUMIRA [Suspect]
     Active Substance: ADALIMUMAB
     Indication: Psoriatic arthropathy
     Dosage: CITRATE FREE
     Route: 058

REACTIONS (6)
  - Inguinal hernia [Recovering/Resolving]
  - Respiratory disorder [Unknown]
  - Oxygen saturation decreased [Unknown]
  - Dermal cyst [Unknown]
  - Paraesthesia [Unknown]
  - Pain in extremity [Unknown]
